FAERS Safety Report 9681981 (Version 2)
Quarter: 2013Q4

REPORT INFORMATION
  Report Type: Report from Study
  Country: US (occurrence: US)
  Receive Date: 20131111
  Receipt Date: 20131111
  Transmission Date: 20140711
  Serious: Yes (Other)
  Sender: FDA-Public Use
  Company Number: US-ACTELION-A-NJ2013-84288

PATIENT
  Age: 66 Year
  Sex: Female

DRUGS (4)
  1. VELETRI [Suspect]
     Indication: COR PULMONALE CHRONIC
     Dosage: 14 NG/KG, PER MIN
     Route: 042
     Dates: start: 20130701
  2. VELETRI [Suspect]
     Dosage: 15 NG/KG, PER MIN
     Route: 041
     Dates: start: 20130501
  3. SILDENAFIL [Concomitant]
  4. OXYGEN [Concomitant]

REACTIONS (7)
  - Hyperthyroidism [Unknown]
  - Anxiety [Unknown]
  - Nervousness [Unknown]
  - Oxygen consumption increased [Unknown]
  - Tremor [Unknown]
  - Nasopharyngitis [Unknown]
  - Respiratory tract congestion [Unknown]
